FAERS Safety Report 6469135-6 (Version None)
Quarter: 2009Q4

REPORT INFORMATION
  Report Type: 
  Country: None (occurrence: None)
  Receive Date: 20091203
  Receipt Date: 20071108
  Transmission Date: 20100525
  Serious: Yes (Hospitalization, Other)
  Sender: FDA-Public Use
  Company Number: AU-ELI_LILLY_AND_COMPANY-AU200702004743

PATIENT
  Age: 89 Year
  Sex: Male

DRUGS (1)
  1. FORTEO [Suspect]
     Indication: MULTIPLE FRACTURES
     Dosage: 20 UG, UNK
     Dates: start: 20060101, end: 20070214

REACTIONS (1)
  - COLON CANCER [None]
